FAERS Safety Report 12983477 (Version 1)
Quarter: 2016Q4

REPORT INFORMATION
  Report Type: Spontaneous
  Country: ZA (occurrence: ZA)
  Receive Date: 20161129
  Receipt Date: 20161129
  Transmission Date: 20170207
  Serious: Yes (Other)
  Sender: FDA-Public Use
  Company Number: ZA-SYNTHON BV-NL01PV16_42458

PATIENT
  Age: 55 Year
  Sex: Female

DRUGS (1)
  1. ADCO-ZOLPIDEM HEMITARTRATE [Suspect]
     Active Substance: ZOLPIDEM\ZOLPIDEM TARTRATE
     Indication: INSOMNIA
     Dosage: UNK
     Route: 048

REACTIONS (3)
  - Dermatitis allergic [Recovering/Resolving]
  - Cellulitis [Recovering/Resolving]
  - Heart rate increased [Unknown]
